FAERS Safety Report 10507523 (Version 2)
Quarter: 2014Q4

REPORT INFORMATION
  Report Type: Report from Study
  Country: PR (occurrence: PR)
  Receive Date: 20141009
  Receipt Date: 20141211
  Transmission Date: 20150528
  Serious: Yes (Death, Other)
  Sender: FDA-Public Use
  Company Number: PR-ABBVIE-14K-131-1292305-00

PATIENT
  Age: 71 Year
  Sex: Female
  Weight: 68.1 kg

DRUGS (4)
  1. TRAMADOL [Concomitant]
     Active Substance: TRAMADOL
     Indication: PRODUCT USED FOR UNKNOWN INDICATION
  2. HUMIRA [Suspect]
     Active Substance: ADALIMUMAB
     Indication: RHEUMATOID ARTHRITIS
     Route: 058
     Dates: start: 2012, end: 2014
  3. NEURONTIN [Concomitant]
     Active Substance: GABAPENTIN
     Indication: PRODUCT USED FOR UNKNOWN INDICATION
  4. UNKNOWN MEDICATIONS [Concomitant]
     Active Substance: UNSPECIFIED INGREDIENT
     Indication: PRODUCT USED FOR UNKNOWN INDICATION

REACTIONS (3)
  - Cerebral haemorrhage [Recovered/Resolved]
  - Intervertebral disc protrusion [Unknown]
  - Cardiac arrest [Fatal]

NARRATIVE: CASE EVENT DATE: 20140629
